FAERS Safety Report 18001162 (Version 1)
Quarter: 2020Q3

REPORT INFORMATION
  Report Type: Spontaneous
  Country: CA (occurrence: CA)
  Receive Date: 20200709
  Receipt Date: 20200709
  Transmission Date: 20201103
  Serious: Yes (Hospitalization)
  Sender: FDA-Public Use
  Company Number: CA-TEVA-2020-CA-1797776

PATIENT
  Age: 74 Year
  Sex: Male

DRUGS (3)
  1. CYCLOPHOSPHAMIDE. [Suspect]
     Active Substance: CYCLOPHOSPHAMIDE
     Indication: CHRONIC LYMPHOCYTIC LEUKAEMIA
     Route: 065
  2. RITUXIMAB. [Suspect]
     Active Substance: RITUXIMAB
     Indication: CHRONIC LYMPHOCYTIC LEUKAEMIA
     Route: 065
  3. FLUDARABINE PHOSPHATE. [Suspect]
     Active Substance: FLUDARABINE PHOSPHATE
     Indication: CHRONIC LYMPHOCYTIC LEUKAEMIA
     Route: 065

REACTIONS (12)
  - Bone marrow infiltration [Unknown]
  - Gingival bleeding [Unknown]
  - Mucosal haemorrhage [Unknown]
  - Asthenia [Unknown]
  - Emphysema [Unknown]
  - Blood blister [Unknown]
  - Cytopenia [Unknown]
  - Lymphopenia [Unknown]
  - Dyspnoea [Unknown]
  - Leukoerythroblastosis [Unknown]
  - Lung adenocarcinoma [Unknown]
  - Thrombocytopenia [Unknown]
